FAERS Safety Report 6104731-7 (Version None)
Quarter: 2009Q1

REPORT INFORMATION
  Report Type: 
  Country: None (occurrence: None)
  Receive Date: 20090304
  Receipt Date: 20090219
  Transmission Date: 20090719
  Serious: Yes (Hospitalization)
  Sender: FDA-Public Use
  Company Number: 231426K09USA

PATIENT
  Age: 48 Year
  Sex: Female

DRUGS (5)
  1. REBIF [Suspect]
     Indication: MULTIPLE SCLEROSIS
     Dosage: 44 MCG, 3 IN 1 WEEKS, SUBCUTANEOUS
     Route: 058
  2. PROZAC [Suspect]
     Indication: DEPRESSION
     Dosage: NOT REPORTED, NOT REPORTED, NOT REPORTED
     Dates: end: 20090101
  3. XANAX [Suspect]
     Indication: DEPRESSION
     Dosage: NOT REPORTED, NOT REPORTED, NOT REPORTED
  4. ATENOLOL [Suspect]
     Indication: HYPERTENSION
     Dosage: NOT REPORTED, NOT REPORTED, NOT REPORTED
  5. ADDERRALL (OBETROL) [Concomitant]

REACTIONS (5)
  - DEPRESSION [None]
  - INCORRECT DOSE ADMINISTERED [None]
  - MUSCULOSKELETAL PAIN [None]
  - NECK PAIN [None]
  - PAIN [None]
